FAERS Safety Report 10731142 (Version 2)
Quarter: 2015Q1

REPORT INFORMATION
  Report Type: Spontaneous
  Country: CN (occurrence: CN)
  Receive Date: 20150122
  Receipt Date: 20150204
  Transmission Date: 20150721
  Serious: Yes (Hospitalization)
  Sender: FDA-Public Use
  Company Number: CN-ELI_LILLY_AND_COMPANY-CN201501006925

PATIENT
  Age: 80 Year
  Sex: Female

DRUGS (3)
  1. HUMULIN R [Suspect]
     Active Substance: INSULIN HUMAN
     Indication: DIABETES MELLITUS
     Dosage: 16 DF, EACH MORNING
     Route: 058
     Dates: start: 201203
  2. HUMULIN R [Suspect]
     Active Substance: INSULIN HUMAN
     Dosage: 14 DF, EACH EVENING
     Route: 058
     Dates: start: 201203
  3. ACARBOSE. [Concomitant]
     Active Substance: ACARBOSE
     Indication: BLOOD GLUCOSE INCREASED
     Dosage: 1 DF, TID
     Route: 048
     Dates: start: 201203

REACTIONS (1)
  - Diabetic complication [Recovering/Resolving]
